FAERS Safety Report 4912930-2 (Version None)
Quarter: 2006Q1

REPORT INFORMATION
  Report Type: 
  Country: None (occurrence: None)
  Receive Date: 20060210
  Receipt Date: 20060131
  Transmission Date: 20060701
  Serious: No
  Sender: FDA-Public Use
  Company Number: 221647

PATIENT
  Age: 4 Year
  Sex: Male
  Weight: 12 kg

DRUGS (7)
  1. NUTROPIN AQ [Suspect]
     Indication: RENAL FAILURE CHRONIC
     Dosage: 0.6 MG, 6/WEEK, SUBCUTANEOUS
     Route: 058
     Dates: start: 20030709
  2. BACTRIM [Concomitant]
  3. BICITRA (CITRIC ACID, SODIUM CITRATE) [Concomitant]
  4. CALCIFEROL (ERGOCALCIFEROL) [Concomitant]
  5. CALCIUM CARBONATE (CALCIUM CARBONATE) [Concomitant]
  6. MIRALAX [Concomitant]
  7. POLY-VI-SOL (ASCORBIC ACID, CHOLECALCIFEROL, FOLIC ACID, VITAMIN A, VI [Concomitant]

REACTIONS (5)
  - DIALYSIS [None]
  - DYSPLASIA [None]
  - HYDRONEPHROSIS [None]
  - NEPHROPATHY [None]
  - RENAL FAILURE CHRONIC [None]
